FAERS Safety Report 8460048-7 (Version None)
Quarter: 2012Q2

REPORT INFORMATION
  Report Type: 
  Country: None (occurrence: None)
  Receive Date: 20120622
  Receipt Date: 20120613
  Transmission Date: 20120825
  Serious: Yes (Hospitalization)
  Sender: FDA-Public Use
  Company Number: SE-ASTRAZENECA-2012SE39626

PATIENT
  Age: 82 Year
  Sex: Female

DRUGS (13)
  1. ALENDRONATE SODIUM [Concomitant]
  2. ACETAMINOPHEN [Concomitant]
  3. ESIDRIX [Concomitant]
  4. HYDROXOCOBALAMIN [Concomitant]
  5. OXAZEPAM [Concomitant]
  6. ZOLPIDEM TATRATE [Concomitant]
  7. METOPROLOL SUCCINATE [Suspect]
     Indication: ATRIAL FIBRILLATION
     Route: 048
     Dates: start: 20120121, end: 20120309
  8. LAMICTAL [Concomitant]
  9. CALCIUM CARBONATE [Concomitant]
     Dosage: 500MG/400 IE
  10. LAXOBERAL [Concomitant]
     Dosage: 7.5 MG/ML
     Route: 048
  11. ESTRADIOL [Concomitant]
  12. WARFARIN SODIUM [Concomitant]
  13. BETNOVAT [Concomitant]
     Dosage: 1 MG/ML
     Route: 003

REACTIONS (3)
  - FALL [None]
  - BRADYCARDIA [None]
  - SYNCOPE [None]
